FAERS Safety Report 16153878 (Version 2)
Quarter: 2019Q3

REPORT INFORMATION
  Report Type: Report from Study
  Country: IN (occurrence: IN)
  Receive Date: 20190403
  Receipt Date: 20190712
  Transmission Date: 20191004
  Serious: Yes (Other)
  Sender: FDA-Public Use
  Company Number: PHHY2018IN044443

PATIENT
  Age: 42 Year
  Sex: Female
  Weight: 49 kg

DRUGS (4)
  1. SPEXIB [Suspect]
     Active Substance: CERITINIB
     Dosage: 300 MG, QD
     Route: 048
     Dates: start: 20180614, end: 20190327
  2. SPEXIB [Suspect]
     Active Substance: CERITINIB
     Dosage: UNK (300 MG OD FOR 2 CONSECUTIVE DAYS, THEN 450 MG OD ON 3RD DAY + SO ON)
     Route: 048
     Dates: start: 20190328, end: 20190624
  3. SPEXIB [Suspect]
     Active Substance: CERITINIB
     Dosage: 300 MG, QD
     Route: 048
     Dates: start: 20190625
  4. SPEXIB [Suspect]
     Active Substance: CERITINIB
     Indication: NON-SMALL CELL LUNG CANCER
     Dosage: 450 MG, QD
     Route: 048
     Dates: start: 20180529, end: 20180613

REACTIONS (1)
  - Diarrhoea [Recovered/Resolved]

NARRATIVE: CASE EVENT DATE: 20180529
